FAERS Safety Report 12616764 (Version 1)
Quarter: 2016Q3

REPORT INFORMATION
  Report Type: Spontaneous
  Country: JP (occurrence: JP)
  Receive Date: 20160802
  Receipt Date: 20160802
  Transmission Date: 20161109
  Serious: Yes (Other)
  Sender: FDA-Public Use
  Company Number: JP-ASTRAZENECA-2016SE82560

PATIENT
  Age: 74 Year
  Sex: Male

DRUGS (11)
  1. CRESTOR [Suspect]
     Active Substance: ROSUVASTATIN CALCIUM
     Indication: HYPERCHOLESTEROLAEMIA
     Route: 048
     Dates: start: 20130806
  2. ATEDIO [Concomitant]
     Route: 048
     Dates: start: 20140602
  3. TSUMURA SHAKUYAKUKANZOTO EXTRACT GRANULES FOR ETHICAL USE [Concomitant]
     Route: 048
     Dates: start: 20130806
  4. LENDORMIN [Concomitant]
     Active Substance: BROTIZOLAM
     Route: 065
     Dates: start: 20140917
  5. GLACTIV [Concomitant]
     Active Substance: SITAGLIPTIN
     Indication: DIABETES MELLITUS
     Route: 065
     Dates: start: 20100107
  6. NOVORAPID [Concomitant]
     Active Substance: INSULIN ASPART
     Indication: DIABETES MELLITUS
     Route: 065
     Dates: start: 20130520
  7. DERMOVATE [Concomitant]
     Active Substance: CLOBETASOL
     Route: 062
     Dates: start: 20140212
  8. ROHYPNOL [Concomitant]
     Active Substance: FLUNITRAZEPAM
     Route: 065
     Dates: start: 20140917
  9. FORXIGA [Suspect]
     Active Substance: DAPAGLIFLOZIN
     Indication: DIABETES MELLITUS
     Route: 048
     Dates: start: 20140716
  10. METACT [Concomitant]
     Active Substance: METFORMIN HYDROCHLORIDE\PIOGLITAZONE HYDROCHLORIDE
     Indication: DIABETES MELLITUS
     Route: 048
     Dates: start: 20140602
  11. MOHRUS TAPE [Concomitant]
     Active Substance: KETOPROFEN
     Route: 062
     Dates: start: 20140212

REACTIONS (1)
  - Cerebral infarction [Recovered/Resolved]

NARRATIVE: CASE EVENT DATE: 20141117
